FAERS Safety Report 20649672 (Version 1)
Quarter: 2022Q1

REPORT INFORMATION
  Report Type: Spontaneous
  Country: GB (occurrence: GB)
  Receive Date: 20220329
  Receipt Date: 20220329
  Transmission Date: 20220423
  Serious: Yes (Other)
  Sender: FDA-Public Use
  Company Number: GB-ABBVIE-22K-167-4335679-00

PATIENT
  Age: 14 Year
  Sex: Male
  Weight: 56 kg

DRUGS (4)
  1. EPILIM [Suspect]
     Active Substance: VALPROATE SODIUM
     Indication: Generalised tonic-clonic seizure
     Dosage: TAKE ONE AS DIRECTED, IN THE MORNING
     Route: 065
     Dates: start: 20200923, end: 20200923
  2. EPILIM [Suspect]
     Active Substance: VALPROATE SODIUM
     Dosage: TAKE ONE AS DIRECTED, IN THE MORNING
     Route: 065
     Dates: start: 20200923
  3. INTUNIV [Suspect]
     Active Substance: GUANFACINE HYDROCHLORIDE
     Indication: Product used for unknown indication
     Dosage: AT 8 AM
     Route: 048
     Dates: start: 20191105
  4. INTUNIV [Suspect]
     Active Substance: GUANFACINE HYDROCHLORIDE
     Route: 065

REACTIONS (2)
  - Petit mal epilepsy [Recovered/Resolved]
  - Epilepsy [Unknown]

NARRATIVE: CASE EVENT DATE: 20201002
